FAERS Safety Report 11215208 (Version 1)
Quarter: 2015Q2

REPORT INFORMATION
  Report Type: Spontaneous
  Country: US (occurrence: None)
  Receive Date: 20150608
  Receipt Date: 20150608
  Transmission Date: 20150821
  Serious: No
  Sender: FDA-Public Use
  Company Number: 2015TUS000841

PATIENT
  Age: 25 Year
  Sex: Female
  Weight: 117.5 kg

DRUGS (2)
  1. BRINTELLIX [Suspect]
     Active Substance: VORTIOXETINE HYDROBROMIDE
     Indication: DEPRESSION
     Route: 048
     Dates: start: 20150107, end: 20150115
  2. BRINTELLIX [Suspect]
     Active Substance: VORTIOXETINE HYDROBROMIDE
     Indication: MAJOR DEPRESSION
     Route: 048
     Dates: start: 20150107, end: 20150115

REACTIONS (8)
  - Anxiety [None]
  - Abdominal pain upper [None]
  - Vomiting [None]
  - Agitation [None]
  - Musculoskeletal discomfort [None]
  - Libido decreased [None]
  - Energy increased [None]
  - Diarrhoea [None]

NARRATIVE: CASE EVENT DATE: 20150107
